FAERS Safety Report 25738109 (Version 1)
Quarter: 2025Q3

REPORT INFORMATION
  Report Type: Spontaneous
  Country: EU (occurrence: EU)
  Receive Date: 20250829
  Receipt Date: 20250829
  Transmission Date: 20251020
  Serious: Yes (Death, Hospitalization, Other)
  Sender: CELLTRION
  Company Number: EU-AMGEN-BELSP2025144703

PATIENT

DRUGS (43)
  1. TRASTUZUMAB [Suspect]
     Active Substance: TRASTUZUMAB
     Indication: Metastases to liver
     Route: 065
     Dates: start: 202405
  2. XGEVA [Suspect]
     Active Substance: DENOSUMAB
     Indication: Metastases to bone
     Route: 065
     Dates: end: 2024
  3. XGEVA [Suspect]
     Active Substance: DENOSUMAB
     Indication: Hypocalcaemia
  4. FULVESTRANT [Suspect]
     Active Substance: FULVESTRANT
     Indication: Metastases to bone
     Route: 065
  5. FULVESTRANT [Suspect]
     Active Substance: FULVESTRANT
     Indication: Breast cancer metastatic
  6. FULVESTRANT [Suspect]
     Active Substance: FULVESTRANT
     Indication: Metastases to bone
  7. GEMCITABINE [Suspect]
     Active Substance: GEMCITABINE
     Indication: Breast cancer metastatic
     Route: 065
     Dates: start: 2024
  8. GEMCITABINE [Suspect]
     Active Substance: GEMCITABINE
     Indication: Metastases to bone
  9. GEMCITABINE [Suspect]
     Active Substance: GEMCITABINE
     Indication: Metastases to central nervous system
  10. CARBOPLATIN [Suspect]
     Active Substance: CARBOPLATIN
     Indication: Breast cancer metastatic
     Route: 065
     Dates: start: 2024
  11. CARBOPLATIN [Suspect]
     Active Substance: CARBOPLATIN
     Indication: Metastases to bone
  12. CARBOPLATIN [Suspect]
     Active Substance: CARBOPLATIN
     Indication: Metastases to central nervous system
  13. DENOSUMAB [Suspect]
     Active Substance: DENOSUMAB
     Indication: Metastases to bone
     Route: 065
  14. DENOSUMAB [Suspect]
     Active Substance: DENOSUMAB
     Indication: Breast cancer metastatic
  15. PALBOCICLIB [Suspect]
     Active Substance: PALBOCICLIB
     Indication: Metastases to bone
     Route: 065
     Dates: start: 202405, end: 202405
  16. PALBOCICLIB [Suspect]
     Active Substance: PALBOCICLIB
     Indication: Breast cancer metastatic
  17. PALBOCICLIB [Suspect]
     Active Substance: PALBOCICLIB
     Indication: Metastases to bone
  18. TRASTUZUMAB DERUXTECAN [Suspect]
     Active Substance: TRASTUZUMAB DERUXTECAN
     Indication: Breast cancer metastatic
     Route: 065
     Dates: start: 202405
  19. TRASTUZUMAB DERUXTECAN [Suspect]
     Active Substance: TRASTUZUMAB DERUXTECAN
     Indication: Metastases to liver
  20. CAPECITABINE [Suspect]
     Active Substance: CAPECITABINE
     Indication: Metastases to bone
     Route: 065
     Dates: start: 2022
  21. CAPECITABINE [Suspect]
     Active Substance: CAPECITABINE
     Indication: Breast cancer metastatic
  22. CAPECITABINE [Suspect]
     Active Substance: CAPECITABINE
     Indication: Metastases to bone
  23. CAPECITABINE [Suspect]
     Active Substance: CAPECITABINE
     Indication: Metastases to central nervous system
  24. EXEMESTANE [Suspect]
     Active Substance: EXEMESTANE
     Indication: Breast cancer metastatic
     Route: 065
  25. EXEMESTANE [Suspect]
     Active Substance: EXEMESTANE
     Indication: Metastases to central nervous system
  26. EXEMESTANE [Suspect]
     Active Substance: EXEMESTANE
     Indication: Metastases to bone
  27. AFINITOR [Suspect]
     Active Substance: EVEROLIMUS
     Indication: Metastases to bone
     Route: 065
  28. AFINITOR [Suspect]
     Active Substance: EVEROLIMUS
     Indication: Breast cancer metastatic
  29. AFINITOR [Suspect]
     Active Substance: EVEROLIMUS
     Indication: Metastases to central nervous system
  30. AROMASIN [Suspect]
     Active Substance: EXEMESTANE
     Indication: Breast cancer metastatic
     Route: 065
  31. AROMASIN [Suspect]
     Active Substance: EXEMESTANE
     Indication: Metastases to central nervous system
  32. AROMASIN [Suspect]
     Active Substance: EXEMESTANE
     Indication: Metastases to bone
  33. ALFACALCIDOL [Concomitant]
     Active Substance: ALFACALCIDOL
     Route: 065
     Dates: start: 2024
  34. ALFACALCIDOL [Concomitant]
     Active Substance: ALFACALCIDOL
     Route: 065
     Dates: start: 2024
  35. ALFACALCIDOL [Concomitant]
     Active Substance: ALFACALCIDOL
     Route: 065
     Dates: start: 2024
  36. CALCIUM CARBONATE [Concomitant]
     Active Substance: CALCIUM CARBONATE
     Dates: start: 2024
  37. CALCIUM CARBONATE [Concomitant]
     Active Substance: CALCIUM CARBONATE
     Dates: start: 2024
  38. VITAMIN D3 [Concomitant]
     Active Substance: CHOLECALCIFEROL
     Dosage: 25000 INTERNATIONAL UNIT, QMO
     Route: 065
  39. CALCIUM [Concomitant]
     Active Substance: CALCIUM
     Route: 042
     Dates: start: 2024
  40. CALCIUM [Concomitant]
     Active Substance: CALCIUM
     Route: 048
     Dates: start: 202409
  41. PACLITAXEL [Concomitant]
     Active Substance: PACLITAXEL
     Indication: Breast cancer metastatic
     Route: 065
  42. CYCLOPHOSPHAMIDE [Concomitant]
     Active Substance: CYCLOPHOSPHAMIDE
     Indication: Breast cancer metastatic
     Route: 065
  43. EPIRUBICIN [Concomitant]
     Active Substance: EPIRUBICIN
     Indication: Breast cancer metastatic
     Route: 065

REACTIONS (10)
  - Death [Fatal]
  - Metastases to central nervous system [Unknown]
  - Metastases to bone [Unknown]
  - Metastases to liver [Unknown]
  - Hypocalcaemia [Recovered/Resolved]
  - Hyperphosphataemia [Unknown]
  - Vitamin D decreased [Unknown]
  - Decreased appetite [Unknown]
  - Fatigue [Unknown]
  - Drug ineffective [Unknown]

NARRATIVE: CASE EVENT DATE: 20240101
